FAERS Safety Report 6914924-4 (Version None)
Quarter: 2010Q3

REPORT INFORMATION
  Report Type: 
  Country: None (occurrence: None)
  Receive Date: 20100804
  Receipt Date: 20100804
  Transmission Date: 20110219
  Serious: Yes (Hospitalization)
  Sender: FDA-Public Use
  Company Number: None

PATIENT
  Age: 59 Year
  Sex: Male

DRUGS (1)
  1. SPIRONOLACTONE [Suspect]
     Dates: start: 20091201

REACTIONS (3)
  - DEHYDRATION [None]
  - DIZZINESS [None]
  - RENAL FAILURE ACUTE [None]
